FAERS Safety Report 6074789-2 (Version None)
Quarter: 2009Q1

REPORT INFORMATION
  Report Type: 
  Country: None (occurrence: None)
  Receive Date: 20090209
  Receipt Date: 20090126
  Transmission Date: 20090719
  Serious: Yes (Hospitalization)
  Sender: FDA-Public Use
  Company Number: KV200900137

PATIENT
  Age: 47 Year
  Sex: Male
  Weight: 145.1 kg

DRUGS (2)
  1. MORPHINE SULFATE [Suspect]
     Indication: ARTHRALGIA
     Dosage: 30 MG, 20 TABS TID, ORAL
     Route: 048
     Dates: start: 20040101
  2. METHADONE HCL [Concomitant]

REACTIONS (9)
  - CARDIAC DISORDER [None]
  - DIZZINESS [None]
  - GAIT DISTURBANCE [None]
  - PNEUMONIA [None]
  - PRESYNCOPE [None]
  - PRODUCT QUALITY ISSUE [None]
  - PULMONARY THROMBOSIS [None]
  - SOMNOLENCE [None]
  - THROMBOSIS [None]
